FAERS Safety Report 11908751 (Version 1)
Quarter: 2016Q1

REPORT INFORMATION
  Report Type: Spontaneous
  Country: US (occurrence: US)
  Receive Date: 20160111
  Receipt Date: 20160111
  Transmission Date: 20160526
  Serious: No
  Sender: FDA-Public Use
  Company Number: US-009507513-2008SP023732

PATIENT
  Age: 27 Year
  Sex: Female

DRUGS (5)
  1. PROTONIX [Concomitant]
     Active Substance: PANTOPRAZOLE SODIUM
     Indication: DYSPEPSIA
     Dosage: 40 MG, UNK
     Dates: start: 20090515
  2. REBETOL [Suspect]
     Active Substance: RIBAVIRIN
     Indication: HEPATITIS C
     Dosage: 400 MG, QD
     Dates: start: 20080722
  3. PEGINTRON [Suspect]
     Active Substance: PEGINTERFERON ALFA-2B
     Indication: PRODUCT USED FOR UNKNOWN INDICATION
     Dosage: 80 ?G, QW
     Dates: start: 20080722
  4. PROMETHAZINE [Concomitant]
     Active Substance: PROMETHAZINE\PROMETHAZINE HYDROCHLORIDE
     Indication: NAUSEA
     Dosage: 1/2 TAB
     Dates: start: 20081020, end: 20081230
  5. MINERALS (UNSPECIFIED) (+) VITAMINS (UNSPECIFIED) [Concomitant]
     Indication: NUTRITIONAL SUPPLEMENTATION
     Dosage: 1 TAB
     Route: 048
     Dates: start: 20081009

REACTIONS (2)
  - No adverse event [Unknown]
  - Exposure via father [Recovered/Resolved]

NARRATIVE: CASE EVENT DATE: 20080722
